FAERS Safety Report 5510949-4 (Version None)
Quarter: 2007Q4

REPORT INFORMATION
  Report Type: 
  Country: None (occurrence: None)
  Receive Date: 20071030
  Receipt Date: 20060918
  Transmission Date: 20080405
  Serious: Yes (Hospitalization, Other)
  Sender: FDA-Public Use
  Company Number: HQWYE868319SEP06

PATIENT
  Age: 66 Year
  Sex: Female
  Weight: 68.1 kg

DRUGS (2)
  1. PREMARIN [Suspect]
     Indication: MENOPAUSAL SYMPTOMS
     Dosage: 0.625 MG; FREQUENCY UNKNOWN, ORAL
     Route: 048
     Dates: end: 20060801
  2. CELEBREX [Concomitant]

REACTIONS (1)
  - CEREBROVASCULAR ACCIDENT [None]
